FAERS Safety Report 4401639-X (Version None)
Quarter: 2004Q3

REPORT INFORMATION
  Report Type: 
  Country: None (occurrence: None)
  Receive Date: 20040719
  Receipt Date: 20040611
  Transmission Date: 20050211
  Serious: Yes (Other)
  Sender: FDA-Public Use
  Company Number: US-ROCHE-371033

PATIENT
  Age: 35 Year
  Sex: Male
  Weight: 68 kg

DRUGS (2)
  1. PEGASYS [Suspect]
     Indication: HEPATITIS C
     Dosage: ROUTE REPORTED AS INJ.
     Route: 050
     Dates: start: 20040215
  2. COPEGUS [Suspect]
     Indication: HEPATITIS C
     Route: 048
     Dates: start: 20040215

REACTIONS (15)
  - ANOREXIA [None]
  - BLOOD BLISTER [None]
  - DEAFNESS [None]
  - DRUG INEFFECTIVE [None]
  - FATIGUE [None]
  - GASTROOESOPHAGEAL REFLUX DISEASE [None]
  - HYPOTRICHOSIS [None]
  - MEMORY IMPAIRMENT [None]
  - MOUTH ULCERATION [None]
  - NAUSEA [None]
  - PAIN [None]
  - PRURITUS [None]
  - SINUS DISORDER [None]
  - TONSILLITIS [None]
  - WEIGHT DECREASED [None]
